FAERS Safety Report 16469638 (Version 1)
Quarter: 2019Q2

REPORT INFORMATION
  Report Type: Spontaneous
  Country: CN (occurrence: CN)
  Receive Date: 20190624
  Receipt Date: 20190624
  Transmission Date: 20190711
  Serious: Yes (Other)
  Sender: FDA-Public Use
  Company Number: CN-PFIZER INC-2019262928

PATIENT
  Age: 71 Year
  Sex: Male

DRUGS (2)
  1. SOLU-MEDROL [Suspect]
     Active Substance: METHYLPREDNISOLONE SODIUM SUCCINATE
     Indication: EOSINOPHILIC BRONCHITIS
     Dosage: 40 MG, 1X/DAY
     Route: 041
     Dates: start: 20190527, end: 20190610
  2. SODIUM CHLORIDE. [Concomitant]
     Active Substance: SODIUM CHLORIDE
     Indication: VEHICLE SOLUTION USE
     Dosage: 100 ML, 1X/DAY
     Route: 041
     Dates: start: 20190527, end: 20190610

REACTIONS (4)
  - Blood glucose increased [Recovering/Resolving]
  - Polydipsia [Recovering/Resolving]
  - Steroid diabetes [Unknown]
  - Polydipsia [Recovering/Resolving]

NARRATIVE: CASE EVENT DATE: 201906
